FAERS Safety Report 16665313 (Version 1)
Quarter: 2019Q3

REPORT INFORMATION
  Report Type: Spontaneous
  Country: ES (occurrence: ES)
  Receive Date: 20190803
  Receipt Date: 20190803
  Transmission Date: 20191004
  Serious: Yes (Hospitalization)
  Sender: FDA-Public Use
  Company Number: ES-TEVA-2019-ES-1087532

PATIENT
  Age: 86 Year
  Sex: Male

DRUGS (3)
  1. AMLODIPINO 5 MG COMPRIMIDOS 30 COMPRIMIDOS [Suspect]
     Active Substance: AMLODIPINE BESYLATE
     Dosage: 1 AT BREAKFAST, 5 MG
     Route: 048
     Dates: start: 20121107, end: 20190708
  2. CIPROFLOXACINO 500 MG 14 COMPRIMIDOS [Suspect]
     Active Substance: CIPROFLOXACIN
     Indication: URINARY TRACT INFECTION
     Dosage: 500 MG
     Route: 048
     Dates: start: 20190627, end: 20190703
  3. DOXAZOSINA 4 MG 28 COMPRIMIDOS LIBERACION MODIFICADA [Suspect]
     Active Substance: DOXAZOSIN MESYLATE
     Indication: HYPERTENSION
     Dosage: 4 MG
     Route: 048
     Dates: start: 20121107, end: 20190710

REACTIONS (1)
  - Acute kidney injury [Recovered/Resolved]

NARRATIVE: CASE EVENT DATE: 20190705
